FAERS Safety Report 10445434 (Version 1)
Quarter: 2014Q3

REPORT INFORMATION
  Report Type: Spontaneous
  Country: US (occurrence: US)
  Receive Date: 20140908
  Receipt Date: 20140908
  Transmission Date: 20150326
  Serious: No
  Sender: FDA-Public Use
  Company Number: US-BRISTOL-MYERS SQUIBB COMPANY-19457365

PATIENT
  Age: 43 Year
  Sex: Female
  Weight: 68.03 kg

DRUGS (14)
  1. ABILIFY [Suspect]
     Active Substance: ARIPIPRAZOLE
     Indication: SUICIDAL IDEATION
     Dosage: INT JUN13?RESTART UNK DT
     Dates: start: 201301, end: 20130910
  2. GABAPENTIN. [Concomitant]
     Active Substance: GABAPENTIN
  3. LEVETIRACETAM. [Concomitant]
     Active Substance: LEVETIRACETAM
  4. SERTRALINE [Concomitant]
     Active Substance: SERTRALINE HYDROCHLORIDE
  5. HYDROCODONE [Concomitant]
     Active Substance: HYDROCODONE
  6. OXCARBAZEPINE. [Concomitant]
     Active Substance: OXCARBAZEPINE
  7. MAXALT [Concomitant]
     Active Substance: RIZATRIPTAN BENZOATE
  8. BUDESONIDE. [Concomitant]
     Active Substance: BUDESONIDE
  9. ABILIFY [Suspect]
     Active Substance: ARIPIPRAZOLE
     Indication: BIPOLAR DISORDER
     Dosage: INT JUN13?RESTART UNK DT
     Dates: start: 201301, end: 20130910
  10. ABILIFY [Suspect]
     Active Substance: ARIPIPRAZOLE
     Indication: DEPRESSION
     Dosage: INT JUN13?RESTART UNK DT
     Dates: start: 201301, end: 20130910
  11. BACLOFEN. [Concomitant]
     Active Substance: BACLOFEN
  12. TRILEPTAL [Concomitant]
     Active Substance: OXCARBAZEPINE
  13. CLONAZEPAM. [Concomitant]
     Active Substance: CLONAZEPAM
  14. ESTRADIOL. [Concomitant]
     Active Substance: ESTRADIOL

REACTIONS (1)
  - Muscle spasms [Unknown]
